FAERS Safety Report 22776128 (Version 11)
Quarter: 2024Q4

REPORT INFORMATION
  Report Type: Report from Study
  Country: CA (occurrence: CA)
  Receive Date: 20230802
  Receipt Date: 20241226
  Transmission Date: 20250115
  Serious: Yes (Hospitalization, Other)
  Sender: TAKEDA
  Company Number: CA-TAKEDA-2023TUS074355

PATIENT
  Sex: Male

DRUGS (6)
  1. VEDOLIZUMAB [Suspect]
     Active Substance: VEDOLIZUMAB
     Indication: Crohn^s disease
     Dosage: 300 MILLIGRAM
  2. VEDOLIZUMAB [Suspect]
     Active Substance: VEDOLIZUMAB
     Dosage: 300 MILLIGRAM
  3. VEDOLIZUMAB [Suspect]
     Active Substance: VEDOLIZUMAB
     Dosage: 300 MILLIGRAM
  4. VEDOLIZUMAB [Suspect]
     Active Substance: VEDOLIZUMAB
     Dosage: 300 MILLIGRAM
  5. VEDOLIZUMAB [Suspect]
     Active Substance: VEDOLIZUMAB
     Dosage: 300 MILLIGRAM
  6. VEDOLIZUMAB [Suspect]
     Active Substance: VEDOLIZUMAB
     Dosage: 300 MILLIGRAM

REACTIONS (17)
  - Clostridium difficile infection [Recovering/Resolving]
  - Bone sarcoma [Unknown]
  - Disorientation [Unknown]
  - Feeling of body temperature change [Unknown]
  - Vomiting [Unknown]
  - Renal disorder [Unknown]
  - Arthritis infective [Recovering/Resolving]
  - General physical health deterioration [Recovering/Resolving]
  - Dehydration [Recovered/Resolved]
  - Malaise [Recovering/Resolving]
  - Malignant muscle neoplasm [Recovering/Resolving]
  - Postoperative wound infection [Recovering/Resolving]
  - Pallor [Recovering/Resolving]
  - Weight decreased [Recovering/Resolving]
  - Asthenia [Recovering/Resolving]
  - Poor venous access [Not Recovered/Not Resolved]
  - Vascular access site bruising [Not Recovered/Not Resolved]
